FAERS Safety Report 25051637 (Version 1)
Quarter: 2025Q1

REPORT INFORMATION
  Report Type: Spontaneous
  Country: US (occurrence: None)
  Receive Date: 20250307
  Receipt Date: 20250307
  Transmission Date: 20250408
  Serious: Yes (Hospitalization, Other)
  Sender: FDA-CTU
  Company Number: None

PATIENT
  Age: 39 Year
  Sex: Female
  Weight: 181 kg

DRUGS (1)
  1. CEFTRIAXONE [Suspect]
     Active Substance: CEFTRIAXONE
     Route: 040
     Dates: start: 20250303, end: 20250303

REACTIONS (7)
  - Supraventricular tachycardia [None]
  - Hypotension [None]
  - Erythema [None]
  - Nausea [None]
  - Vomiting [None]
  - Abdominal pain [None]
  - Left ventricular dysfunction [None]

NARRATIVE: CASE EVENT DATE: 20250303
